FAERS Safety Report 12231687 (Version 3)
Quarter: 2016Q2

REPORT INFORMATION
  Report Type: Spontaneous
  Country: US (occurrence: US)
  Receive Date: 20160401
  Receipt Date: 20160421
  Transmission Date: 20160815
  Serious: No
  Sender: FDA-Public Use
  Company Number: US-MDT-ADR-2016-00610

PATIENT
  Sex: Female

DRUGS (15)
  1. BACLOFEN. [Suspect]
     Active Substance: BACLOFEN
     Dosage: 159.90 MCG/DAY
     Route: 037
  2. DILAUDID [Suspect]
     Active Substance: HYDROMORPHONE HYDROCHLORIDE
     Dosage: 5.996 MG/DAY
     Route: 037
  3. GLIPIZIDE. [Suspect]
     Active Substance: GLIPIZIDE
  4. METFORMIN [Suspect]
     Active Substance: METFORMIN HYDROCHLORIDE
  5. DILTIAZEM [Suspect]
     Active Substance: DILTIAZEM
  6. VALIUM [Suspect]
     Active Substance: DIAZEPAM
  7. BUPIVACAINE. [Suspect]
     Active Substance: BUPIVACAINE
     Dosage: 4.997 MG/DAY
     Route: 037
  8. LASIX [Suspect]
     Active Substance: FUROSEMIDE
  9. DIAZEPAM. [Suspect]
     Active Substance: DIAZEPAM
  10. NALOXONE [Suspect]
     Active Substance: NALOXONE
  11. ALLEGRA [Suspect]
     Active Substance: FEXOFENADINE HYDROCHLORIDE
  12. B VITAMINS [Suspect]
     Active Substance: CYANOCOBALAMIN\DEXPANTHENOL\NIACINAMIDE\PYRIDOXINE HYDROCHLORIDE\RIBOFLAVIN 5^-PHOSPHATE SODIUM\THIAMINE HYDROCHLORIDE\VITAMIN B COMPLEX
  13. DILAUDID [Suspect]
     Active Substance: HYDROMORPHONE HYDROCHLORIDE
  14. NEXIUM [Suspect]
     Active Substance: ESOMEPRAZOLE MAGNESIUM
  15. CALCIUM [Suspect]
     Active Substance: CALCIUM

REACTIONS (1)
  - Medical device discomfort [Not Recovered/Not Resolved]
